FAERS Safety Report 7638972-4 (Version None)
Quarter: 2011Q3

REPORT INFORMATION
  Report Type: 
  Country: None (occurrence: None)
  Receive Date: 20110727
  Receipt Date: 20110721
  Transmission Date: 20111222
  Serious: Yes (Other)
  Sender: FDA-Public Use
  Company Number: US-PFIZER INC-2011156042

PATIENT
  Sex: Female

DRUGS (2)
  1. ZITHROMAX [Suspect]
     Dosage: UNK
  2. PRINIVIL [Suspect]
     Dosage: UNK

REACTIONS (3)
  - BRONCHITIS [None]
  - ANGIOEDEMA [None]
  - ANAPHYLACTIC REACTION [None]
